FAERS Safety Report 19735242 (Version 2)
Quarter: 2021Q3

REPORT INFORMATION
  Report Type: Spontaneous
  Country: FR (occurrence: FR)
  Receive Date: 20210823
  Receipt Date: 20210831
  Transmission Date: 20211014
  Serious: Yes (Hospitalization, Other)
  Sender: FDA-Public Use
  Company Number: FR-EPICPHARMA-FR-2021EPCLIT00913

PATIENT
  Age: 31 Year
  Sex: Female

DRUGS (4)
  1. FUROSEMIDE. [Interacting]
     Active Substance: FUROSEMIDE
     Indication: SUPPORTIVE CARE
     Route: 065
  2. COCAINE [Suspect]
     Active Substance: COCAINE
     Indication: SUICIDE ATTEMPT
     Route: 048
  3. NALOXONE [Interacting]
     Active Substance: NALOXONE
     Indication: SUPPORTIVE CARE
     Route: 065
  4. METHADONE HYDROCHLORIDE. [Suspect]
     Active Substance: METHADONE HYDROCHLORIDE
     Indication: PRODUCT USED FOR UNKNOWN INDICATION
     Route: 048

REACTIONS (6)
  - Coma [Recovered/Resolved]
  - Suicide attempt [Unknown]
  - Acute myocardial infarction [Recovered/Resolved]
  - Mitral valve incompetence [Recovered/Resolved]
  - Stress cardiomyopathy [Recovered/Resolved]
  - Bradypnoea [Recovered/Resolved]
